FAERS Safety Report 4760220-3 (Version None)
Quarter: 2005Q3

REPORT INFORMATION
  Report Type: 
  Country: None (occurrence: None)
  Receive Date: 20050902
  Receipt Date: 20050823
  Transmission Date: 20060218
  Serious: Yes (Other)
  Sender: FDA-Public Use
  Company Number: FR-JNJFOC-20050506237

PATIENT
  Sex: Female
  Weight: 58 kg

DRUGS (4)
  1. HALDOL DECANOAS [Suspect]
     Indication: SCHIZOPHRENIA
     Route: 030
  2. LEPTICUR [Concomitant]
     Route: 065
  3. AKINETON [Concomitant]
     Route: 065
  4. TAHOR [Concomitant]
     Route: 065

REACTIONS (2)
  - HYPERTHYROIDISM [None]
  - PALPITATIONS [None]
